FAERS Safety Report 9416514 (Version 1)
Quarter: 2013Q3

REPORT INFORMATION
  Report Type: Report from Study
  Country: CA (occurrence: CA)
  Receive Date: 20130724
  Receipt Date: 20130724
  Transmission Date: 20140515
  Serious: Yes (Other)
  Sender: FDA-Public Use
  Company Number: CA-JNJFOC-20130711704

PATIENT
  Sex: Female
  Weight: 66.2 kg

DRUGS (11)
  1. REMICADE [Suspect]
     Indication: CROHN^S DISEASE
     Route: 042
     Dates: start: 20120822
  2. DETROL [Concomitant]
     Route: 065
  3. ADALAT [Concomitant]
     Route: 065
  4. ESTRADIOL [Concomitant]
     Route: 065
  5. IRBESARTAN [Concomitant]
     Route: 065
  6. HYDROCHLOROTHIAZIDE [Concomitant]
     Route: 065
  7. NASONEX [Concomitant]
     Route: 065
  8. LANSOPRAZOLE [Concomitant]
     Route: 065
  9. ADVAIR [Concomitant]
     Route: 065
  10. METOCLOPRAMIDE [Concomitant]
     Route: 065
  11. LOPERAMIDE HYDROCHLORIDE [Concomitant]
     Route: 065

REACTIONS (1)
  - Supraventricular tachycardia [Not Recovered/Not Resolved]
